FAERS Safety Report 16339216 (Version 5)
Quarter: 2020Q1

REPORT INFORMATION
  Report Type: Report from Study
  Country: US (occurrence: US)
  Receive Date: 20190521
  Receipt Date: 20200218
  Transmission Date: 20200409
  Serious: Yes (Hospitalization, Other)
  Sender: FDA-Public Use
  Company Number: PHEH2019US021020

PATIENT
  Sex: Female

DRUGS (2)
  1. GILENYA [Suspect]
     Active Substance: FINGOLIMOD HYDROCHLORIDE
     Dosage: UNK
     Route: 065
  2. GILENYA [Suspect]
     Active Substance: FINGOLIMOD HYDROCHLORIDE
     Indication: MULTIPLE SCLEROSIS
     Dosage: 0.5 MG, QD
     Route: 048

REACTIONS (23)
  - Amnesia [Unknown]
  - Tremor [Unknown]
  - Temperature intolerance [Unknown]
  - Neuralgia [Not Recovered/Not Resolved]
  - Visual impairment [Unknown]
  - Seizure [Unknown]
  - Petit mal epilepsy [Unknown]
  - Skin plaque [Unknown]
  - Migraine [Unknown]
  - Hallucination [Unknown]
  - Pain in extremity [Unknown]
  - Generalised tonic-clonic seizure [Unknown]
  - Hypoaesthesia [Unknown]
  - Asthenia [Unknown]
  - Cystitis [Unknown]
  - Dementia [Unknown]
  - Fall [Unknown]
  - Contusion [Unknown]
  - Dysstasia [Unknown]
  - Nephropathy [Unknown]
  - Skin cancer [Unknown]
  - Pain [Unknown]
  - Headache [Unknown]
